FAERS Safety Report 12493998 (Version 5)
Quarter: 2017Q1

REPORT INFORMATION
  Report Type: Spontaneous
  Country: US (occurrence: US)
  Receive Date: 20160623
  Receipt Date: 20170302
  Transmission Date: 20170428
  Serious: Yes (Other)
  Sender: FDA-Public Use
  Company Number: US-PFIZER INC-2016313155

PATIENT
  Age: 32 Year
  Sex: Male
  Weight: 70.76 kg

DRUGS (2)
  1. VIAGRA [Suspect]
     Active Substance: SILDENAFIL CITRATE
     Indication: ERECTILE DYSFUNCTION
     Dosage: UNK
     Route: 048
  2. VIAGRA [Suspect]
     Active Substance: SILDENAFIL CITRATE
     Dosage: 100 MG, AS NEEDED
     Route: 048
     Dates: start: 20170129

REACTIONS (11)
  - Orgasm abnormal [Unknown]
  - Drug effect decreased [Unknown]
  - Product quality issue [Unknown]
  - Pain [Not Recovered/Not Resolved]
  - Rash [Unknown]
  - Intentional product misuse [Unknown]
  - Erection increased [Unknown]
  - Inflammation [Unknown]
  - Painful erection [Not Recovered/Not Resolved]
  - Testicular pain [Unknown]
  - Ejaculation disorder [Unknown]

NARRATIVE: CASE EVENT DATE: 20170223
